FAERS Safety Report 12563832 (Version 2)
Quarter: 2016Q3

REPORT INFORMATION
  Report Type: Spontaneous
  Country: US (occurrence: US)
  Receive Date: 20160716
  Receipt Date: 20160725
  Transmission Date: 20161109
  Serious: Yes (Hospitalization)
  Sender: FDA-Public Use
  Company Number: US-AMGEN-USASP2016089639

PATIENT
  Age: 75 Year
  Sex: Male

DRUGS (1)
  1. ENBREL [Suspect]
     Active Substance: ETANERCEPT
     Indication: RHEUMATOID ARTHRITIS
     Dosage: 25 MG, UNK
     Route: 065

REACTIONS (7)
  - Hypokinesia [Unknown]
  - Malaise [Unknown]
  - Influenza [Unknown]
  - Renal disorder [Unknown]
  - Nodule [Unknown]
  - Musculoskeletal stiffness [Unknown]
  - Limb deformity [Unknown]
